FAERS Safety Report 20483251 (Version 1)
Quarter: 2022Q1

REPORT INFORMATION
  Report Type: Report from Study
  Country: IN (occurrence: IN)
  Receive Date: 20220217
  Receipt Date: 20220217
  Transmission Date: 20220423
  Serious: Yes (Death, Hospitalization)
  Sender: FDA-Public Use
  Company Number: IN-NOVARTISPH-NVSC2022IN036276

PATIENT
  Age: 55 Year
  Sex: Female

DRUGS (1)
  1. RIBOCICLIB [Suspect]
     Active Substance: RIBOCICLIB
     Indication: Breast cancer metastatic
     Dosage: 600 MG, QD
     Route: 065
     Dates: start: 20210107, end: 20220115

REACTIONS (3)
  - Asthenia [Fatal]
  - Hypophagia [Fatal]
  - Bedridden [Fatal]

NARRATIVE: CASE EVENT DATE: 20220118
